FAERS Safety Report 4821268-3 (Version None)
Quarter: 2005Q4

REPORT INFORMATION
  Report Type: 
  Country: None (occurrence: None)
  Receive Date: 20051107
  Receipt Date: 20051102
  Transmission Date: 20060501
  Serious: Yes (Hospitalization, Other)
  Sender: FDA-Public Use
  Company Number: US-RB-2274-2005

PATIENT
  Sex: Female
  Weight: 113.95 kg

DRUGS (31)
  1. SUBOXONE [Suspect]
  2. PROCHLORPERAZINE EDISYLATE [Concomitant]
     Route: 030
     Dates: start: 20051019, end: 20051019
  3. DROPERIDOL [Concomitant]
     Route: 030
     Dates: start: 20051019, end: 20051022
  4. DIPHENHYDRAMINE HCL [Concomitant]
     Dosage: X 1 DOSE OF 25MG ADMINISTERED 20-OCT-2005
     Route: 030
     Dates: start: 20051019, end: 20051020
  5. DIPHENHYDRAMINE HCL [Concomitant]
     Route: 048
     Dates: start: 20051020, end: 20051020
  6. DIPHENHYDRAMINE HCL [Concomitant]
     Route: 048
     Dates: start: 20051021, end: 20051029
  7. DICYCLOMINE HCL [Concomitant]
     Indication: IRRITABLE BOWEL SYNDROME
     Route: 048
     Dates: start: 20051019, end: 20051024
  8. KETOROLAC TROMETHAMINE [Concomitant]
     Route: 030
     Dates: start: 20051021, end: 20051027
  9. TRIMETHOPRIM-SULFAMETHOXAZOLE [Concomitant]
     Indication: URINARY TRACT INFECTION
     Dosage: TRIMETHOPRIM COMPONENT OF TABLET
     Route: 048
     Dates: start: 20051022, end: 20051024
  10. TRIMETHOPRIM-SULFAMETHOXAZOLE [Concomitant]
     Dosage: SULFAMETHOXAZOLE COMPONENT OF TABLET
     Route: 048
     Dates: start: 20051022, end: 20051024
  11. OXAZEPAM [Concomitant]
     Indication: ANXIETY
     Route: 048
     Dates: start: 20051019, end: 20051030
  12. GABAPENTIN [Concomitant]
     Route: 048
     Dates: start: 20051019, end: 20051021
  13. GABAPENTIN [Concomitant]
     Route: 048
     Dates: start: 20051021, end: 20051026
  14. GABAPENTIN [Concomitant]
     Route: 048
     Dates: start: 20051026, end: 20051031
  15. AMOXICILLIN [Concomitant]
     Indication: INFECTION
     Route: 048
     Dates: start: 20051024, end: 20051031
  16. FERROUS SULFATE TAB [Concomitant]
     Indication: IRON DEFICIENCY
     Route: 048
     Dates: start: 20051024, end: 20051025
  17. OMEPRAZOLE [Concomitant]
     Route: 048
     Dates: start: 20051021, end: 20051031
  18. QUETIAPINE FUMARATE [Concomitant]
     Indication: INSOMNIA
     Route: 048
     Dates: start: 20051020, end: 20051024
  19. QUETIAPINE FUMARATE [Concomitant]
     Dosage: 3 DOSES GIVEN; 25MG 0315, 50MG 2130, 100MG 2210
     Route: 048
     Dates: start: 20051025, end: 20051025
  20. QUETIAPINE FUMARATE [Concomitant]
     Route: 048
     Dates: start: 20051027, end: 20051027
  21. PROMETHAZINE HYDROCHLORIDE [Concomitant]
     Indication: NAUSEA
     Dosage: X 2 DOSES ADMINISTERED AS ORAL TABLET 21-OCT-2005 AND 24-OCT-2005
     Route: 030
     Dates: start: 20051019, end: 20051024
  22. METHOCARBAMOL [Concomitant]
     Dosage: X2 DOSES OF 750 MG GIVEN ON DAYS 24-OCT-2005 AND 26-OCT-2005
     Route: 048
     Dates: start: 20051019, end: 20051102
  23. CLONIDINE [Concomitant]
     Route: 048
     Dates: start: 20051024, end: 20051029
  24. IBUPROFEN [Concomitant]
     Route: 048
     Dates: start: 20051019, end: 20051102
  25. DOCUSATE SODIUM [Concomitant]
     Indication: CONSTIPATION
     Route: 048
     Dates: start: 20051024, end: 20051031
  26. CLOTRIMAZOLE [Concomitant]
     Route: 067
     Dates: start: 20051024, end: 20051031
  27. SIMETHICONE [Concomitant]
     Indication: FLATULENCE
  28. MULTIVITAMIN AND MINERAL SUPPLEMENT [Concomitant]
     Indication: VITAMIN SUPPLEMENTATION
     Route: 048
     Dates: start: 20051020, end: 20051031
  29. THIAMIN [Concomitant]
     Indication: IRON DEFICIENCY
     Route: 048
     Dates: start: 20051020, end: 20051022
  30. FOLATE SODIUM [Concomitant]
     Indication: DRUG USE FOR UNKNOWN INDICATION
     Route: 048
     Dates: start: 20051020, end: 20051022
  31. MAGNESIUM OXIDE [Concomitant]
     Indication: DRUG USE FOR UNKNOWN INDICATION
     Route: 048
     Dates: start: 20051019, end: 20051023

REACTIONS (2)
  - OEDEMA PERIPHERAL [None]
  - VOMITING [None]
